FAERS Safety Report 5522347-8 (Version None)
Quarter: 2007Q4

REPORT INFORMATION
  Report Type: 
  Country: None (occurrence: None)
  Receive Date: 20071120
  Receipt Date: 20071108
  Transmission Date: 20080405
  Serious: Yes (Hospitalization)
  Sender: FDA-Public Use
  Company Number: JP-ELI_LILLY_AND_COMPANY-JP200711003733

PATIENT
  Sex: Male
  Weight: 46.5 kg

DRUGS (1)
  1. GEMCITABINE HCL [Suspect]
     Indication: PLEURAL MESOTHELIOMA MALIGNANT
     Dosage: 900 MG/M2, OTHER
     Route: 042

REACTIONS (1)
  - MYELODYSPLASTIC SYNDROME [None]
